FAERS Safety Report 14899017 (Version 1)
Quarter: 2018Q2

REPORT INFORMATION
  Report Type: Spontaneous
  Country: FR (occurrence: FR)
  Receive Date: 20180516
  Receipt Date: 20180516
  Transmission Date: 20180711
  Serious: Yes (Other)
  Sender: FDA-Public Use
  Company Number: FR-MERCK KGAA-2047846

PATIENT
  Age: 56 Year
  Sex: Female

DRUGS (3)
  1. NOVOTHYROX [Suspect]
     Active Substance: LEVOTHYROXINE SODIUM
     Indication: POST PROCEDURAL HYPOTHYROIDISM
     Dates: start: 20170608, end: 201711
  2. NOVOTHYROX [Suspect]
     Active Substance: LEVOTHYROXINE SODIUM
     Dates: start: 20170608, end: 201711
  3. NOVOTHYROX [Suspect]
     Active Substance: LEVOTHYROXINE SODIUM
     Dates: start: 20170608, end: 201711

REACTIONS (47)
  - Euphoric mood [None]
  - Tendonitis [None]
  - Blood thyroid stimulating hormone decreased [None]
  - Chest pain [None]
  - Crying [None]
  - Fatigue [None]
  - Depression [None]
  - Myalgia [None]
  - Presyncope [None]
  - Fear [None]
  - Phagophobia [None]
  - Nausea [None]
  - Vision blurred [None]
  - Gait disturbance [None]
  - Ill-defined disorder [Recovered/Resolved]
  - Hyperhidrosis [None]
  - Palpitations [Recovered/Resolved]
  - Headache [None]
  - Tendon pain [None]
  - Pain in extremity [None]
  - Dizziness [None]
  - Dyspnoea [None]
  - Alopecia [Not Recovered/Not Resolved]
  - Loss of personal independence in daily activities [None]
  - Eye swelling [None]
  - Pyrexia [None]
  - Choking [None]
  - Blood pressure increased [Recovered/Resolved]
  - Urinary tract infection [None]
  - Psychiatric symptom [None]
  - Anxiety [None]
  - Arthralgia [None]
  - Pruritus [None]
  - Suicidal ideation [None]
  - Tension [None]
  - Bone pain [None]
  - Arthralgia [Not Recovered/Not Resolved]
  - Musculoskeletal stiffness [Not Recovered/Not Resolved]
  - Peripheral swelling [Not Recovered/Not Resolved]
  - Impaired work ability [None]
  - Tachycardia [Recovered/Resolved]
  - Blood pressure decreased [Recovered/Resolved]
  - Amnesia [Not Recovered/Not Resolved]
  - Anger [None]
  - Chest discomfort [None]
  - Depressed mood [None]
  - Insomnia [Recovered/Resolved]

NARRATIVE: CASE EVENT DATE: 2017
